FAERS Safety Report 22792624 (Version 3)
Quarter: 2023Q4

REPORT INFORMATION
  Report Type: Report from Study
  Country: US (occurrence: US)
  Receive Date: 20230807
  Receipt Date: 20231108
  Transmission Date: 20240109
  Serious: No
  Sender: FDA-Public Use
  Company Number: US-002147023-NVSC2023US171674

PATIENT
  Age: 65 Year
  Sex: Female

DRUGS (2)
  1. LEQVIO [Suspect]
     Active Substance: INCLISIRAN SODIUM
     Indication: Product used for unknown indication
     Dosage: UNK
     Route: 058
     Dates: start: 19580624
  2. LEQVIO [Suspect]
     Active Substance: INCLISIRAN SODIUM
     Dosage: UNK
     Route: 058
     Dates: start: 20230712

REACTIONS (11)
  - Nausea [Unknown]
  - Pain in extremity [Unknown]
  - Headache [Unknown]
  - Chest discomfort [Recovered/Resolved]
  - Abdominal pain upper [Unknown]
  - Arthralgia [Unknown]
  - Restlessness [Unknown]
  - Sleep disorder [Unknown]
  - Fatigue [Unknown]
  - Alopecia [Unknown]
  - Pain [Unknown]

NARRATIVE: CASE EVENT DATE: 20230712
